FAERS Safety Report 25381027 (Version 3)
Quarter: 2025Q3

REPORT INFORMATION
  Report Type: Report from Study
  Country: US (occurrence: US)
  Receive Date: 20250530
  Receipt Date: 20250801
  Transmission Date: 20251021
  Serious: Yes (Other)
  Sender: MALLINCKRODT
  Company Number: US-MALLINCKRODT-MNK202503203

PATIENT
  Age: 33 Year
  Sex: Female

DRUGS (2)
  1. CORTICOTROPIN [Suspect]
     Active Substance: CORTICOTROPIN
     Indication: Systemic lupus erythematosus
     Route: 058
     Dates: start: 20250508
  2. SAPHNELO [ANIFROLUMAB FNIA] [Concomitant]

REACTIONS (8)
  - Systemic lupus erythematosus [Unknown]
  - Nausea [Unknown]
  - Injection site bruising [Recovered/Resolved]
  - Injection site pain [Not Recovered/Not Resolved]
  - Injection site swelling [Unknown]
  - Injection site discolouration [Unknown]
  - Asthenia [Unknown]
  - Malaise [Unknown]

NARRATIVE: CASE EVENT DATE: 20250101
